FAERS Safety Report 9433776 (Version 1)
Quarter: 2013Q3

REPORT INFORMATION
  Report Type: Spontaneous
  Country: GB (occurrence: GB)
  Receive Date: 20130731
  Receipt Date: 20130731
  Transmission Date: 20140515
  Serious: Yes (Other)
  Sender: FDA-Public Use
  Company Number: GB-ASTRAZENECA-2013SE55159

PATIENT
  Age: 44 Year
  Sex: Female
  Weight: 58.5 kg

DRUGS (2)
  1. LIGNOCAINE [Suspect]
     Indication: ANALGESIC THERAPY
     Dosage: TOTAL DAILY DOSE 100 MG
     Route: 062
     Dates: start: 20130709, end: 20130709
  2. ASPIRIN [Concomitant]

REACTIONS (4)
  - Pruritus generalised [Recovered/Resolved]
  - Hypersensitivity [Recovered/Resolved]
  - Dyspnoea [Recovered/Resolved]
  - Urticaria [Recovered/Resolved]
